FAERS Safety Report 5655739-7 (Version None)
Quarter: 2008Q1

REPORT INFORMATION
  Report Type: 
  Country: None (occurrence: None)
  Receive Date: 20080212
  Receipt Date: 20071108
  Transmission Date: 20080703
  Serious: Yes (Other)
  Sender: FDA-Public Use
  Company Number: MC200700699

PATIENT
  Sex: Male

DRUGS (3)
  1. ANGIOMAX [Suspect]
     Indication: PERCUTANEOUS CORONARY INTERVENTION
     Dates: start: 20071001, end: 20071001
  2. PLAVIX [Suspect]
     Dosage: 600 MG, SINGLE POST-PROCEDURE
     Dates: start: 20071001, end: 20071001
  3. ASPIRIN [Concomitant]

REACTIONS (2)
  - CHEST PAIN [None]
  - STENT OCCLUSION [None]
